FAERS Safety Report 12262250 (Version 1)
Quarter: 2016Q2

REPORT INFORMATION
  Report Type: Report from Study
  Country: CA (occurrence: CA)
  Receive Date: 20160413
  Receipt Date: 20160413
  Transmission Date: 20160815
  Serious: Yes (Other)
  Sender: FDA-Public Use
  Company Number: CA-009507513-1309CAN013929

PATIENT
  Age: 61 Year
  Sex: Male

DRUGS (4)
  1. PEGINTERFERON ALFA-2B [Suspect]
     Active Substance: PEGINTERFERON ALFA-2B
     Indication: HEPATITIS C
     Dosage: 180 MICROGRAM, QW
     Route: 065
     Dates: start: 20120202
  2. RIBAVIRIN. [Suspect]
     Active Substance: RIBAVIRIN
     Indication: HEPATITIS C
     Dosage: 600 MG, BID
     Route: 065
     Dates: start: 20120202
  3. RIBAVIRIN. [Suspect]
     Active Substance: RIBAVIRIN
     Dosage: ADJUSTED DOSE
  4. INCIVEK [Suspect]
     Active Substance: TELAPREVIR
     Indication: HEPATITIS C
     Dosage: 750 MG, TID
     Route: 048
     Dates: start: 20120202

REACTIONS (2)
  - Rash [Unknown]
  - Anaemia [Unknown]

NARRATIVE: CASE EVENT DATE: 20120311
